FAERS Safety Report 20229580 (Version 5)
Quarter: 2022Q1

REPORT INFORMATION
  Report Type: Spontaneous
  Country: JP (occurrence: JP)
  Receive Date: 20211225
  Receipt Date: 20220217
  Transmission Date: 20220424
  Serious: Yes (Death, Hospitalization)
  Sender: FDA-Public Use
  Company Number: JP-CHUGAI-2021033075

PATIENT
  Age: 61 Year
  Sex: Male
  Weight: 94 kg

DRUGS (3)
  1. TECENTRIQ [Suspect]
     Active Substance: ATEZOLIZUMAB
     Indication: Hepatocellular carcinoma
     Route: 041
     Dates: start: 20210916, end: 20211122
  2. AVASTIN [Suspect]
     Active Substance: BEVACIZUMAB
     Indication: Hepatocellular carcinoma
     Route: 041
     Dates: start: 20210916, end: 20211122
  3. CORTRIL [Concomitant]
     Active Substance: HYDROCORTISONE
     Indication: Adrenocorticotropic hormone deficiency
     Dosage: 15 MILLIGRAM
     Route: 065
     Dates: start: 20210917

REACTIONS (2)
  - Encephalitis [Fatal]
  - Hashimoto^s encephalopathy [Fatal]

NARRATIVE: CASE EVENT DATE: 20211205
